FAERS Safety Report 5897092-X (Version None)
Quarter: 2008Q3

REPORT INFORMATION
  Report Type: 
  Country: None (occurrence: None)
  Receive Date: 20080924
  Receipt Date: 20080623
  Transmission Date: 20090109
  Serious: Yes (Other)
  Sender: FDA-Public Use
  Company Number: US-ASTRAZENECA-2008UW12684

PATIENT
  Age: 27 Year
  Sex: Female
  Weight: 102.1 kg

DRUGS (4)
  1. SEROQUEL [Suspect]
     Indication: BIPOLAR DISORDER
     Route: 048
  2. SEROQUEL [Suspect]
     Route: 048
  3. OXYCODONE HCL [Concomitant]
  4. YAZ [Concomitant]
     Indication: CONTRACEPTION

REACTIONS (6)
  - BLEPHAROSPASM [None]
  - EUPHORIC MOOD [None]
  - GRAND MAL CONVULSION [None]
  - INCREASED APPETITE [None]
  - PETIT MAL EPILEPSY [None]
  - WEIGHT INCREASED [None]
